FAERS Safety Report 12398101 (Version 1)
Quarter: 2016Q2

REPORT INFORMATION
  Report Type: Spontaneous
  Country: US (occurrence: US)
  Receive Date: 20160524
  Receipt Date: 20160524
  Transmission Date: 20160815
  Serious: No
  Sender: FDA-Public Use
  Company Number: US-BAXALTA-2016BLT003580

PATIENT
  Sex: Female

DRUGS (6)
  1. HYQVIA [Suspect]
     Active Substance: HUMAN IMMUNOGLOBULIN G\HYALURONIDASE RECOMBINANT HUMAN
     Dosage: 55 G, EVERY 4 WK, 300ML VIAL
     Route: 058
     Dates: start: 201604, end: 201604
  2. HYQVIA [Suspect]
     Active Substance: HUMAN IMMUNOGLOBULIN G\HYALURONIDASE RECOMBINANT HUMAN
     Dosage: 55 G, EVERY 4 WK, FIRST FULL DOSE, 300ML VIAL
     Route: 058
     Dates: start: 201512, end: 201512
  3. HYQVIA [Suspect]
     Active Substance: HUMAN IMMUNOGLOBULIN G\HYALURONIDASE RECOMBINANT HUMAN
     Dosage: 55 G, EVERY 4 WK, 200ML VIAL
     Route: 058
     Dates: start: 201604, end: 201604
  4. HYQVIA [Suspect]
     Active Substance: HUMAN IMMUNOGLOBULIN G\HYALURONIDASE RECOMBINANT HUMAN
     Dosage: 55 G, EVERY 4 WK, FIRST FULL DOSE, 200ML VIAL
     Route: 058
     Dates: start: 201512, end: 201512
  5. HYQVIA [Suspect]
     Active Substance: HUMAN IMMUNOGLOBULIN G\HYALURONIDASE RECOMBINANT HUMAN
     Indication: IMMUNODEFICIENCY COMMON VARIABLE
     Dosage: 55 G, EVERY 4 WK, 15ML VIAL
     Route: 058
     Dates: start: 201604, end: 201604
  6. HYQVIA [Suspect]
     Active Substance: HUMAN IMMUNOGLOBULIN G\HYALURONIDASE RECOMBINANT HUMAN
     Dosage: 55 G, EVERY 4 WK, FIRST FULL DOSE, 50ML VIAL
     Route: 058
     Dates: start: 201512, end: 201512

REACTIONS (1)
  - Infusion site erythema [Recovering/Resolving]
